FAERS Safety Report 15775331 (Version 1)
Quarter: 2018Q4

REPORT INFORMATION
  Report Type: Report from Study
  Country: US (occurrence: US)
  Receive Date: 20181231
  Receipt Date: 20181231
  Transmission Date: 20190205
  Serious: Yes (Other)
  Sender: FDA-Public Use
  Company Number: US-ROCHE-2235696

PATIENT

DRUGS (4)
  1. NELIPEPIMUT-S [Suspect]
     Active Substance: NELIPEPIMUT-S
     Indication: HER-2 POSITIVE BREAST CANCER
     Route: 065
  2. TRASTUZUMAB. [Suspect]
     Active Substance: TRASTUZUMAB
     Indication: HER-2 POSITIVE BREAST CANCER
     Dosage: LOADING DOSE
     Route: 042
  3. TRASTUZUMAB. [Suspect]
     Active Substance: TRASTUZUMAB
     Dosage: MAINTENANCE DOSE
     Route: 058
     Dates: end: 20160726
  4. SARGRAMOSTIM [Suspect]
     Active Substance: SARGRAMOSTIM
     Indication: HER-2 POSITIVE BREAST CANCER
     Dosage: FOR 6 TOTAL INOCULATIONS
     Route: 023

REACTIONS (1)
  - Impaired healing [Unknown]
